FAERS Safety Report 6436044-8 (Version None)
Quarter: 2009Q4

REPORT INFORMATION
  Report Type: 
  Country: None (occurrence: None)
  Receive Date: 20091111
  Receipt Date: 20090929
  Transmission Date: 20100525
  Serious: No
  Sender: FDA-Public Use
  Company Number: US-BAYER-200916361BCC

PATIENT
  Age: 59 Year
  Sex: Male

DRUGS (6)
  1. ALEVE [Suspect]
     Indication: TOOTH EXTRACTION
     Dosage: TOTAL DAILY DOSE: 880 MG  UNIT DOSE: 220 MG
     Route: 048
     Dates: start: 20090929
  2. PENICILLIN VK [Concomitant]
     Indication: TOOTH ABSCESS
     Route: 065
  3. ATENOLOL [Concomitant]
     Route: 065
  4. WELLBUTRIN [Concomitant]
     Route: 065
  5. GLYBURIDE [Concomitant]
     Route: 065
  6. LIPITOR [Concomitant]
     Route: 065

REACTIONS (1)
  - NO ADVERSE EVENT [None]
